FAERS Safety Report 25940754 (Version 1)
Quarter: 2025Q4

REPORT INFORMATION
  Report Type: Spontaneous
  Country: US (occurrence: US)
  Receive Date: 20251020
  Receipt Date: 20251020
  Transmission Date: 20260117
  Serious: Yes (Other)
  Sender: AMGEN
  Company Number: US-AMGEN-USASP2025207050

PATIENT
  Sex: Male
  Weight: 155 kg

DRUGS (3)
  1. PROLIA [Suspect]
     Active Substance: DENOSUMAB
     Indication: Bone cancer
     Dosage: UNK UNK, QWK (ONCE A WEEK FOR THE FIRST 4 WEEKS)
     Route: 065
     Dates: start: 20250425, end: 2025
  2. PROLIA [Suspect]
     Active Substance: DENOSUMAB
     Indication: Bone density decreased
     Dosage: UNK UNK, QMO (DOSE WAS DOUBLED)
     Route: 065
     Dates: start: 2025
  3. RYBREVANT [Concomitant]
     Active Substance: AMIVANTAMAB-VMJW
     Dosage: UNK UNK, QMO
     Route: 065

REACTIONS (4)
  - Deep vein thrombosis [Not Recovered/Not Resolved]
  - Stomatitis [Not Recovered/Not Resolved]
  - Rash pruritic [Not Recovered/Not Resolved]
  - Off label use [Unknown]

NARRATIVE: CASE EVENT DATE: 20250425
